FAERS Safety Report 7583037-3 (Version None)
Quarter: 2011Q2

REPORT INFORMATION
  Report Type: 
  Country: None (occurrence: None)
  Receive Date: 20110630
  Receipt Date: 20110620
  Transmission Date: 20111010
  Serious: Yes (Death)
  Sender: FDA-Public Use
  Company Number: NL-BRISTOL-MYERS SQUIBB COMPANY-15859408

PATIENT

DRUGS (1)
  1. CYCLOPHOSPHAMIDE [Suspect]
     Dosage: OUT OF 3 PLANNED CYCLES, 3RD CYCLE DONE WITHOUT CYCLOPHOSPHAMIDE.

REACTIONS (1)
  - INAPPROPRIATE ANTIDIURETIC HORMONE SECRETION [None]
